FAERS Safety Report 11543526 (Version 3)
Quarter: 2015Q4

REPORT INFORMATION
  Report Type: Report from Study
  Country: BR (occurrence: BR)
  Receive Date: 20150923
  Receipt Date: 20151222
  Transmission Date: 20160304
  Serious: Yes (Other)
  Sender: FDA-Public Use
  Company Number: PHHY2013BR112536

PATIENT
  Age: 65 Year
  Sex: Female
  Weight: 62 kg

DRUGS (14)
  1. SANDOSTATIN LAR DEPOT [Suspect]
     Active Substance: OCTREOTIDE ACETATE
     Indication: PARATHYROID TUMOUR
  2. PARACETAMOL [Concomitant]
     Active Substance: ACETAMINOPHEN
     Indication: PAIN
  3. DIMORF [Concomitant]
     Active Substance: MORPHINE SULFATE
     Indication: PAIN
     Dosage: 1 DF, EACH 4 1 YEAR AGO
     Route: 065
  4. TYLEX (PARACETAMOL/CODEINE PHOSPHATE) [Concomitant]
     Active Substance: ACETAMINOPHEN\CODEINE PHOSPHATE
     Indication: BONE PAIN
     Dosage: 3 DF, UNK
     Route: 048
  5. APO CALCIUM CARBONATE [Concomitant]
     Indication: BONE DISORDER
     Dosage: 1 DF, (DAILY)
     Route: 065
  6. SANDOSTATIN LAR DEPOT [Suspect]
     Active Substance: OCTREOTIDE ACETATE
     Indication: RENAL CANCER
  7. PARACETAMOL [Concomitant]
     Active Substance: ACETAMINOPHEN
     Indication: BONE PAIN
     Dosage: 4 DF, UNK
     Route: 048
  8. CHOLECALCIFEROL [Concomitant]
     Active Substance: CHOLECALCIFEROL
     Indication: BLOOD IRON ABNORMAL
     Dosage: 50 DRP, QMO
     Route: 065
  9. CABERGOLINE. [Concomitant]
     Active Substance: CABERGOLINE
     Indication: PRODUCT USED FOR UNKNOWN INDICATION
     Dosage: UNK UNK, QW
     Route: 065
  10. CHOLECALCIFEROL [Concomitant]
     Active Substance: CHOLECALCIFEROL
     Indication: BLOOD CALCIUM ABNORMAL
  11. VITAMIN D [Concomitant]
     Active Substance: CHOLECALCIFEROL
     Indication: PRODUCT USED FOR UNKNOWN INDICATION
     Dosage: UNK, QW
     Route: 065
  12. ZOMETA [Concomitant]
     Active Substance: ZOLEDRONIC ACID
     Indication: PRODUCT USED FOR UNKNOWN INDICATION
     Dosage: UNK
     Route: 065
  13. SANDOSTATIN LAR DEPOT [Suspect]
     Active Substance: OCTREOTIDE ACETATE
     Indication: NEUROENDOCRINE TUMOUR
     Dosage: 1 DF OF 20 MG, EVERY 28 DAYS/ MONTHLY
     Route: 030
  14. SANDOSTATIN LAR DEPOT [Suspect]
     Active Substance: OCTREOTIDE ACETATE
     Indication: ADRENAL NEOPLASM

REACTIONS (24)
  - Hypoaesthesia oral [Unknown]
  - Hypersomnia [Unknown]
  - Abasia [Recovering/Resolving]
  - Wrong technique in product usage process [Unknown]
  - Blood calcium increased [Recovering/Resolving]
  - Hypoaesthesia [Recovering/Resolving]
  - Paraesthesia [Unknown]
  - Somnolence [Unknown]
  - Osteoporosis [Unknown]
  - Diarrhoea [Unknown]
  - Weight increased [Unknown]
  - Bone pain [Recovering/Resolving]
  - Hepatic neoplasm [Unknown]
  - Depressed mood [Recovering/Resolving]
  - Muscular weakness [Unknown]
  - Injection site pain [Unknown]
  - Peripheral coldness [Unknown]
  - Insomnia [Unknown]
  - Gait disturbance [Recovering/Resolving]
  - Pain in extremity [Recovering/Resolving]
  - Pain [Unknown]
  - Product use issue [Unknown]
  - Amnesia [Recovering/Resolving]
  - Paraesthesia oral [Unknown]

NARRATIVE: CASE EVENT DATE: 20130914
